FAERS Safety Report 7916601-X (Version None)
Quarter: 2011Q4

REPORT INFORMATION
  Report Type: 
  Country: None (occurrence: None)
  Receive Date: 20111116
  Receipt Date: 20111110
  Transmission Date: 20120403
  Serious: No
  Sender: FDA-Public Use
  Company Number: US-PFIZER INC-2011276925

PATIENT
  Sex: Male

DRUGS (2)
  1. MOTRIN [Concomitant]
     Dosage: UNK
  2. GENOTROPIN [Suspect]
     Dosage: 1.1 MG, DAILY
     Route: 058

REACTIONS (1)
  - HEADACHE [None]
